FAERS Safety Report 9912091 (Version 2)
Quarter: 2014Q1

REPORT INFORMATION
  Report Type: Report from Study
  Country: GU (occurrence: GU)
  Receive Date: 20140219
  Receipt Date: 20140304
  Transmission Date: 20141002
  Serious: Yes (Death, Other)
  Sender: FDA-Public Use
  Company Number: GU-ROCHE-1352867

PATIENT
  Sex: Male
  Weight: 45.85 kg

DRUGS (5)
  1. XELODA [Suspect]
     Indication: TONGUE NEOPLASM MALIGNANT STAGE UNSPECIFIED
     Dosage: 5 DAYS ON AND 2 DAYS OFF, 2 TABS AM, 2 TABS PM
     Route: 048
     Dates: start: 20131013, end: 20140115
  2. CARBOPLATINUM [Concomitant]
     Indication: TONGUE NEOPLASM MALIGNANT STAGE UNSPECIFIED
  3. ERBITUX [Concomitant]
     Indication: TONGUE NEOPLASM MALIGNANT STAGE UNSPECIFIED
  4. METHOTREXATE [Concomitant]
     Indication: TONGUE NEOPLASM MALIGNANT STAGE UNSPECIFIED
  5. FENTANYL [Concomitant]
     Indication: PAIN

REACTIONS (8)
  - Tongue neoplasm malignant stage unspecified [Fatal]
  - Anaemia [Unknown]
  - Hypercalcaemia [Unknown]
  - Dehydration [Unknown]
  - No therapeutic response [Unknown]
  - Mucosal inflammation [Unknown]
  - Dermatitis acneiform [Unknown]
  - Fatigue [Unknown]
